FAERS Safety Report 8389843-X (Version None)
Quarter: 2012Q2

REPORT INFORMATION
  Report Type: 
  Country: None (occurrence: None)
  Receive Date: 20120522
  Receipt Date: 20120515
  Transmission Date: 20120825
  Serious: Yes (Hospitalization)
  Sender: FDA-Public Use
  Company Number: 2012SP021090

PATIENT
  Age: 43 Year
  Sex: Female
  Weight: 60.9 kg

DRUGS (5)
  1. LENDORMIN [Concomitant]
  2. ASENAPINE (ASENAPINE /05706901/) [Suspect]
     Indication: SCHIZOPHRENIA
     Dosage: 5 MG;BID;SL
     Route: 060
     Dates: start: 20110711, end: 20120417
  3. MAGLAX [Concomitant]
  4. PURSENNID [Concomitant]
  5. LORAZEPAM [Concomitant]

REACTIONS (8)
  - WATER INTOXICATION [None]
  - TETANY [None]
  - NEUROLEPTIC MALIGNANT SYNDROME [None]
  - OLIGURIA [None]
  - UNRESPONSIVE TO STIMULI [None]
  - DELIRIUM [None]
  - CONTINUOUS HAEMODIAFILTRATION [None]
  - FALL [None]
